FAERS Safety Report 6696893-8 (Version None)
Quarter: 2010Q2

REPORT INFORMATION
  Report Type: 
  Country: None (occurrence: None)
  Receive Date: 20100426
  Receipt Date: 20100413
  Transmission Date: 20101027
  Serious: Yes (Other)
  Sender: FDA-Public Use
  Company Number: PHHY2010IT23783

PATIENT
  Age: 7 Year
  Sex: Male

DRUGS (2)
  1. CARBAMAZEPINE [Suspect]
     Indication: EPILEPSY
     Dosage: 200 MG, BID (MATERNAL DOSE)
     Route: 064
  2. PHENOBARBITAL [Suspect]
     Indication: EPILEPSY
     Dosage: 100 MG, BID (MATERNAL DOSE)
     Route: 064

REACTIONS (9)
  - DRUG EXPOSURE DURING PREGNANCY [None]
  - FINGER DEFORMITY [None]
  - GROWTH RETARDATION [None]
  - HYPERTELORISM OF ORBIT [None]
  - HYPOSPADIAS [None]
  - LOW SET EARS [None]
  - NOSE DEFORMITY [None]
  - PROMINENT EPICANTHAL FOLDS [None]
  - SURGERY [None]
